FAERS Safety Report 6119251-3 (Version None)
Quarter: 2009Q1

REPORT INFORMATION
  Report Type: 
  Country: None (occurrence: None)
  Receive Date: 20090316
  Receipt Date: 20090306
  Transmission Date: 20090719
  Serious: Yes (Death)
  Sender: FDA-Public Use
  Company Number: US-ELI_LILLY_AND_COMPANY-US200901000340

PATIENT
  Age: 74 Year
  Sex: Male

DRUGS (10)
  1. XIGRIS [Suspect]
     Indication: MULTI-ORGAN FAILURE
     Dates: start: 20081218, end: 20081222
  2. OXYGEN [Concomitant]
     Dates: end: 20081222
  3. ESOMEPRAZOLE [Concomitant]
  4. ALBUTEROL [Concomitant]
  5. ACETYLCYSTEINE [Concomitant]
  6. CALCIUM CHLORIDE /00203801/ [Concomitant]
  7. INSULIN REGULAR /01223201/ [Concomitant]
  8. MAGNESIUM SULFATE [Concomitant]
  9. POTASSIUM CHLORIDE [Concomitant]
  10. HEPARIN SODIUM [Concomitant]

REACTIONS (1)
  - MULTI-ORGAN FAILURE [None]
